FAERS Safety Report 8540273-7 (Version None)
Quarter: 2012Q3

REPORT INFORMATION
  Report Type: 
  Country: None (occurrence: None)
  Receive Date: 20120726
  Receipt Date: 20120718
  Transmission Date: 20120928
  Serious: Yes (Death)
  Sender: FDA-Public Use
  Company Number: DE-ROCHE-1090973

PATIENT
  Sex: Male
  Weight: 70 kg

DRUGS (4)
  1. IRINOTECAN HCL [Suspect]
     Indication: RECTAL CANCER
     Route: 042
     Dates: start: 20110708, end: 20110915
  2. FLUOROURACIL [Suspect]
     Indication: RECTAL CANCER
     Route: 042
     Dates: start: 20110708, end: 20110915
  3. BEVACIZUMAB [Suspect]
     Indication: RECTAL CANCER
     Route: 041
     Dates: start: 20110708, end: 20110915
  4. LEUCOVORIN CALCIUM [Suspect]
     Indication: RECTAL CANCER
     Route: 042
     Dates: start: 20110708, end: 20110915

REACTIONS (1)
  - INTESTINAL ANASTOMOSIS COMPLICATION [None]
